FAERS Safety Report 24249869 (Version 1)
Quarter: 2024Q3

REPORT INFORMATION
  Report Type: Spontaneous
  Country: US (occurrence: None)
  Receive Date: 20240824
  Receipt Date: 20240824
  Transmission Date: 20241017
  Serious: Yes (Hospitalization)
  Sender: Public
  Company Number: None

PATIENT
  Age: 85 Year
  Sex: Female

DRUGS (10)
  1. LENALIDOMIDE [Suspect]
     Active Substance: LENALIDOMIDE
     Indication: Myelodysplastic syndrome
     Dosage: 2.5MG DAILY ORAL
     Route: 048
     Dates: start: 20130606, end: 20240808
  2. LOSARTAN [Concomitant]
  3. DULOXETINE [Concomitant]
  4. ISOSORBIDE DINITRATE [Concomitant]
     Active Substance: ISOSORBIDE DINITRATE
  5. HYDRALAZINE [Concomitant]
  6. FUROSEMIDE [Concomitant]
  7. LEVETIRACETAM [Concomitant]
     Active Substance: LEVETIRACETAM
  8. NPH INSULIN [Concomitant]
     Active Substance: INSULIN BEEF
  9. LOVASTATIN [Concomitant]
  10. METOPROLOL [Concomitant]

REACTIONS (1)
  - Deep vein thrombosis [None]

NARRATIVE: CASE EVENT DATE: 20240811
